FAERS Safety Report 18394068 (Version 2)
Quarter: 2020Q4

REPORT INFORMATION
  Report Type: Spontaneous
  Country: US (occurrence: US)
  Receive Date: 20201016
  Receipt Date: 20201126
  Transmission Date: 20210114
  Serious: No
  Sender: FDA-Public Use
  Company Number: US-ASTRAZENECA-2020SF22469

PATIENT
  Sex: Female
  Weight: 92.5 kg

DRUGS (1)
  1. BYDUREON BCISE [Suspect]
     Active Substance: EXENATIDE
     Indication: INSULIN RESISTANCE
     Route: 058
     Dates: start: 201912

REACTIONS (5)
  - Injection site mass [Unknown]
  - Injection site pruritus [Unknown]
  - Injection site discolouration [Unknown]
  - Drug dose omission by device [Unknown]
  - Device leakage [Unknown]
